FAERS Safety Report 4943579-3 (Version None)
Quarter: 2006Q1

REPORT INFORMATION
  Report Type: 
  Country: None (occurrence: None)
  Receive Date: 20060310
  Receipt Date: 20060222
  Transmission Date: 20060701
  Serious: Yes (Hospitalization)
  Sender: FDA-Public Use
  Company Number: B0403234A

PATIENT
  Age: 63 Year
  Sex: Female
  Weight: 34.927 kg

DRUGS (7)
  1. ZOVIRAX [Suspect]
     Indication: HERPES ZOSTER
     Dosage: THREE TIMES PER DAY/ INTRA
     Dates: start: 20051202, end: 20051207
  2. VIDARABINE [Suspect]
     Indication: HERPES ZOSTER
     Dosage: PER DAY/ TOPICAL
     Route: 061
     Dates: start: 20051202, end: 20051207
  3. CEFOTIAM HYDROCHLORIDE [Concomitant]
  4. ALFACALCIDOL [Concomitant]
  5. FAMOTIDINE [Concomitant]
  6. PREDNISOLONE [Concomitant]
  7. ISOSORBIDE MONONITRATE [Concomitant]

REACTIONS (5)
  - ABNORMAL BEHAVIOUR [None]
  - ENCEPHALOPATHY [None]
  - HALLUCINATION, VISUAL [None]
  - SOMNOLENCE [None]
  - SPEECH DISORDER [None]
